FAERS Safety Report 12457252 (Version 2)
Quarter: 2016Q2

REPORT INFORMATION
  Report Type: Spontaneous
  Country: US (occurrence: US)
  Receive Date: 20160610
  Receipt Date: 20160616
  Transmission Date: 20160815
  Serious: Yes (Hospitalization, Other)
  Sender: FDA-Public Use
  Company Number: US-SA-2016SA107662

PATIENT
  Age: 58 Year
  Sex: Female

DRUGS (2)
  1. EPINEPHRINE. [Suspect]
     Active Substance: EPINEPHRINE
     Indication: ANAPHYLACTIC REACTION
     Route: 042
  2. EPINEPHRINE. [Suspect]
     Active Substance: EPINEPHRINE
     Indication: ANAPHYLACTIC REACTION
     Route: 030

REACTIONS (7)
  - Hypokinesia [Unknown]
  - Troponin increased [Recovering/Resolving]
  - Ejection fraction decreased [Recovered/Resolved]
  - Incorrect dose administered [Unknown]
  - Cardiac stress test abnormal [Unknown]
  - Stress cardiomyopathy [Recovering/Resolving]
  - Electrocardiogram ST segment elevation [Unknown]
